FAERS Safety Report 4824668-0 (Version None)
Quarter: 2005Q4

REPORT INFORMATION
  Report Type: 
  Country: None (occurrence: None)
  Receive Date: 20051012
  Receipt Date: 20050802
  Transmission Date: 20060501
  Serious: No
  Sender: FDA-Public Use
  Company Number: 2005S1000169

PATIENT
  Age: 44 Year
  Weight: 170.5 kg

DRUGS (5)
  1. CUBICIN [Suspect]
     Indication: CELLULITIS
     Dosage: 700 MG;Q24H;IV
     Route: 042
     Dates: start: 20050729, end: 20050801
  2. MAXIPIME [Concomitant]
  3. VANCOMYCIN [Concomitant]
  4. UNSPECIFIED BLOOD [Concomitant]
  5. PRESSURE MEDICATIONS [Concomitant]

REACTIONS (9)
  - ALANINE AMINOTRANSFERASE INCREASED [None]
  - ASPARTATE AMINOTRANSFERASE INCREASED [None]
  - ASTHENIA [None]
  - BLOOD ALBUMIN DECREASED [None]
  - BLOOD CREATINE PHOSPHOKINASE INCREASED [None]
  - BLOOD GLUCOSE INCREASED [None]
  - BLOOD POTASSIUM DECREASED [None]
  - HAEMATURIA [None]
  - PAIN IN EXTREMITY [None]
